FAERS Safety Report 18492205 (Version 1)
Quarter: 2020Q4

REPORT INFORMATION
  Report Type: Spontaneous
  Country: US (occurrence: US)
  Receive Date: 20201111
  Receipt Date: 20201111
  Transmission Date: 20210114
  Serious: No
  Sender: FDA-Public Use
  Company Number: NVSC2020US300111

PATIENT
  Sex: Female

DRUGS (2)
  1. ZOMETA [Suspect]
     Active Substance: ZOLEDRONIC ACID
     Indication: BONE DISORDER
     Dosage: UNK
     Route: 065
  2. IBRANCE [Suspect]
     Active Substance: PALBOCICLIB
     Indication: PRODUCT USED FOR UNKNOWN INDICATION
     Dosage: 100 MG
     Route: 065

REACTIONS (8)
  - Drug ineffective [Unknown]
  - Weight increased [Unknown]
  - Alopecia [Unknown]
  - Head discomfort [Unknown]
  - Headache [Unknown]
  - Eating disorder [Unknown]
  - Peripheral swelling [Unknown]
  - Cognitive disorder [Unknown]
